FAERS Safety Report 10058348 (Version 1)
Quarter: 2014Q2

REPORT INFORMATION
  Report Type: Spontaneous
  Country: US (occurrence: None)
  Receive Date: 20140403
  Receipt Date: 20140403
  Transmission Date: 20141212
  Serious: No
  Sender: FDA-Public Use
  Company Number: None

PATIENT
  Age: 72 Year
  Sex: Female
  Weight: 63.5 kg

DRUGS (15)
  1. PANTOPRAZOLE [Suspect]
     Indication: OESOPHAGITIS
     Dosage: 40 MG 1 A DAY WITH DINNER BY MOUTH
     Route: 048
     Dates: start: 2007, end: 201402
  2. PANTOPRAZOLE [Suspect]
     Indication: GASTROOESOPHAGEAL REFLUX DISEASE
     Dosage: 40 MG 1 A DAY WITH DINNER BY MOUTH
     Route: 048
     Dates: start: 2007, end: 201402
  3. PANTOPRAZOLE [Suspect]
     Indication: HIATUS HERNIA
     Dosage: 40 MG 1 A DAY WITH DINNER BY MOUTH
     Route: 048
     Dates: start: 2007, end: 201402
  4. FLONASE [Concomitant]
  5. PREMARIN VAGINAL CREAM [Concomitant]
  6. METROGEL [Concomitant]
  7. TAGAMET [Concomitant]
  8. ZYRTEC [Concomitant]
  9. MULTIVITAMIN [Concomitant]
  10. VITAMIN D [Concomitant]
  11. ZINC [Concomitant]
  12. FISH OIL [Concomitant]
  13. TUMS [Concomitant]
  14. MAALOX [Concomitant]
  15. GAVISCON [Concomitant]

REACTIONS (3)
  - Abdominal discomfort [None]
  - Abdominal pain upper [None]
  - Self-medication [None]
